FAERS Safety Report 9717715 (Version 1)
Quarter: 2013Q4

REPORT INFORMATION
  Report Type: Spontaneous
  Country: ES (occurrence: ES)
  Receive Date: 20131127
  Receipt Date: 20131127
  Transmission Date: 20140711
  Serious: Yes (Other)
  Sender: FDA-Public Use
  Company Number: ES-LUNDBECK-DKLU1095623

PATIENT
  Age: 47 Year
  Sex: Male

DRUGS (3)
  1. ONFI [Suspect]
     Indication: PRODUCT USED FOR UNKNOWN INDICATION
  2. PHENYTOIN [Suspect]
     Indication: PARTIAL SEIZURES
  3. LAMOTRIGINE [Suspect]
     Indication: PARTIAL SEIZURES

REACTIONS (3)
  - Nephritis allergic [Unknown]
  - Hepatic failure [Unknown]
  - Drug reaction with eosinophilia and systemic symptoms [Unknown]
